FAERS Safety Report 9441323 (Version 1)
Quarter: 2013Q3

REPORT INFORMATION
  Report Type: Spontaneous
  Country: TR (occurrence: TR)
  Receive Date: 20130805
  Receipt Date: 20130805
  Transmission Date: 20140515
  Serious: Yes (Other)
  Sender: FDA-Public Use
  Company Number: CHNY2013TR000547

PATIENT
  Sex: Male

DRUGS (3)
  1. OTRIVIN [Suspect]
     Indication: NASAL CONGESTION
     Dosage: 1 DF, EACH NOSTRIL 1X1
     Route: 045
  2. OTRIVIN [Suspect]
     Indication: HYPERSENSITIVITY
  3. OTRIVIN [Suspect]
     Dosage: UNK, UNK
     Route: 045

REACTIONS (4)
  - Gallbladder polyp [Not Recovered/Not Resolved]
  - Dry throat [Recovered/Resolved]
  - Epistaxis [Recovered/Resolved]
  - Gastrooesophageal reflux disease [Not Recovered/Not Resolved]
